FAERS Safety Report 8444055-6 (Version None)
Quarter: 2012Q2

REPORT INFORMATION
  Report Type: 
  Country: None (occurrence: None)
  Receive Date: 20120618
  Receipt Date: 20120611
  Transmission Date: 20120825
  Serious: Yes (Life-Threatening)
  Sender: FDA-Public Use
  Company Number: JP-UCBSA-057077

PATIENT
  Age: 61 Year
  Sex: Male

DRUGS (6)
  1. PHENOBARBITAL TAB [Concomitant]
     Indication: PARTIAL SEIZURES WITH SECONDARY GENERALISATION
     Dosage: DAILY DOSE: 60MG
     Route: 048
     Dates: start: 20120319, end: 20120419
  2. DEPAKENE [Suspect]
     Indication: PARTIAL SEIZURES WITH SECONDARY GENERALISATION
     Dosage: DAILY DOSE: 400 MG
     Route: 048
     Dates: start: 20120309, end: 20120419
  3. LAMICTAL [Concomitant]
     Indication: PARTIAL SEIZURES WITH SECONDARY GENERALISATION
     Dosage: DAILY DOSE: 25MG
     Route: 048
     Dates: start: 20120309, end: 20120315
  4. KEPPRA [Suspect]
     Indication: PARTIAL SEIZURES WITH SECONDARY GENERALISATION
     Route: 048
     Dates: start: 20120319, end: 20120325
  5. DIAPP [Concomitant]
     Indication: PARTIAL SEIZURES WITH SECONDARY GENERALISATION
     Dosage: PRN
     Route: 054
     Dates: start: 20120309
  6. KEPPRA [Suspect]
     Route: 048
     Dates: start: 20120311, end: 20120318

REACTIONS (1)
  - ANAEMIA [None]
